FAERS Safety Report 23147622 (Version 1)
Quarter: 2023Q4

REPORT INFORMATION
  Report Type: Spontaneous
  Country: NL (occurrence: NL)
  Receive Date: 20231106
  Receipt Date: 20231106
  Transmission Date: 20240110
  Serious: Yes (Other)
  Sender: FDA-Public Use
  Company Number: NL-BIOGEN-2023BI01234448

PATIENT
  Age: 32 Year
  Sex: Female

DRUGS (1)
  1. VUMERITY [Suspect]
     Active Substance: DIROXIMEL FUMARATE
     Indication: Multiple sclerosis
     Dosage: TWICE A DAY 2 CAPSULES, MAINTENANCE DOSE
     Route: 050
     Dates: start: 20230223, end: 20231031

REACTIONS (1)
  - Noninfective encephalitis [Unknown]

NARRATIVE: CASE EVENT DATE: 20230930
